FAERS Safety Report 11665790 (Version 1)
Quarter: 2015Q4

REPORT INFORMATION
  Report Type: Report from Study
  Country: CN (occurrence: CN)
  Receive Date: 20151027
  Receipt Date: 20151027
  Transmission Date: 20160304
  Serious: Yes (Other)
  Sender: FDA-Public Use
  Company Number: CN-SA-2015SA166352

PATIENT

DRUGS (3)
  1. OXALIPLATIN. [Suspect]
     Active Substance: OXALIPLATIN
     Indication: ANGIOCENTRIC LYMPHOMA
     Dosage: 100 MG/M2 FOR 2H AS IV INFUSION ON DAY 1, 3WEEK CYCLE
     Route: 042
  2. PEGASPARGASE [Suspect]
     Active Substance: PEGASPARGASE
     Indication: ANGIOCENTRIC LYMPHOMA
     Dosage: 2000 U/M2 DEEP IM INJ AT TWO DIFFERENT SITES, DAY 1 , 3 WEEK CYCLE
     Route: 030
  3. GEMCITABINE [Suspect]
     Active Substance: GEMCITABINE\GEMCITABINE HYDROCHLORIDE
     Indication: ANGIOCENTRIC LYMPHOMA
     Dosage: 30 MIN IV INFUSION OF 1000 MG/M2, DAY 1 AND 8, 3 WEEK CYCLE
     Route: 042

REACTIONS (1)
  - Haemorrhage intracranial [Unknown]
